FAERS Safety Report 12914346 (Version 1)
Quarter: 2016Q4

REPORT INFORMATION
  Report Type: Spontaneous
  Country: US (occurrence: US)
  Receive Date: 20161106
  Receipt Date: 20161106
  Transmission Date: 20170207
  Serious: No
  Sender: FDA-Public Use
  Company Number: US-RELYPSA-RLY2016001582

PATIENT
  Sex: Female

DRUGS (23)
  1. SENSIPAR [Concomitant]
     Active Substance: CINACALCET HYDROCHLORIDE
  2. NEPHROCAPS                         /01801401/ [Concomitant]
  3. COZAAR [Concomitant]
     Active Substance: LOSARTAN POTASSIUM
  4. OMEPRAZOLE. [Concomitant]
     Active Substance: OMEPRAZOLE
  5. ALPRAZOLAM. [Concomitant]
     Active Substance: ALPRAZOLAM
  6. FAMOTIDINE. [Concomitant]
     Active Substance: FAMOTIDINE
  7. EMLA [Concomitant]
     Active Substance: LIDOCAINE\PRILOCAINE
  8. ZOLOFT [Concomitant]
     Active Substance: SERTRALINE HYDROCHLORIDE
  9. PLAVIX [Concomitant]
     Active Substance: CLOPIDOGREL BISULFATE
  10. PROTEIN SUPPLEMENTS [Concomitant]
     Active Substance: PROTEIN
  11. MEGACE ORAL [Concomitant]
  12. NITROSTAT [Concomitant]
     Active Substance: NITROGLYCERIN
  13. ARANESP [Concomitant]
     Active Substance: DARBEPOETIN ALFA
  14. RENVELA [Concomitant]
     Active Substance: SEVELAMER CARBONATE
  15. ZEMPLAR [Concomitant]
     Active Substance: PARICALCITOL
  16. LANTUS [Concomitant]
     Active Substance: INSULIN GLARGINE
  17. CATAPRES                           /00171101/ [Concomitant]
     Active Substance: CLONIDINE
  18. ATORVASTATIN CALCIUM. [Concomitant]
     Active Substance: ATORVASTATIN CALCIUM
  19. NORVASC [Concomitant]
     Active Substance: AMLODIPINE BESYLATE
  20. CARVEDILOL. [Concomitant]
     Active Substance: CARVEDILOL
  21. HUMALOG [Concomitant]
     Active Substance: INSULIN LISPRO
  22. IMDUR [Concomitant]
     Active Substance: ISOSORBIDE MONONITRATE
  23. VELTASSA [Suspect]
     Active Substance: PATIROMER
     Indication: PRODUCT USED FOR UNKNOWN INDICATION
     Dosage: 8.4 G, QD
     Route: 048
     Dates: start: 20160630

REACTIONS (2)
  - Nausea [Unknown]
  - Vomiting [Unknown]
